FAERS Safety Report 10146992 (Version 3)
Quarter: 2014Q2

REPORT INFORMATION
  Report Type: Spontaneous
  Country: US (occurrence: US)
  Receive Date: 20140501
  Receipt Date: 20140619
  Transmission Date: 20141212
  Serious: Yes (Hospitalization)
  Sender: FDA-Public Use
  Company Number: US-GLAXOSMITHKLINE-A1071627A

PATIENT
  Age: 84 Year
  Sex: Female

DRUGS (9)
  1. ADVAIR [Suspect]
     Indication: PRODUCT USED FOR UNKNOWN INDICATION
     Route: 065
     Dates: start: 20121128
  2. BUSPIRONE [Concomitant]
  3. DILTIAZEM [Concomitant]
  4. DOCUSATE [Concomitant]
  5. LOSARTAN [Concomitant]
  6. ASPIRIN [Concomitant]
  7. DIGOXIN [Concomitant]
  8. FUROSEMIDE [Concomitant]
  9. METOPROLOL [Concomitant]

REACTIONS (1)
  - Investigation [Unknown]
